FAERS Safety Report 6060702-0 (Version None)
Quarter: 2009Q1

REPORT INFORMATION
  Report Type: 
  Country: None (occurrence: None)
  Receive Date: 20090202
  Receipt Date: 20090121
  Transmission Date: 20090719
  Serious: Yes (Hospitalization)
  Sender: FDA-Public Use
  Company Number: FR-PFIZER INC-2009160981

PATIENT

DRUGS (8)
  1. DALACIN [Suspect]
     Dosage: 600 MG, 3X/DAY
     Route: 042
     Dates: start: 20081107
  2. ZOLOFT [Suspect]
     Route: 048
  3. TARGOCID [Suspect]
     Dosage: 800 MG, 1X/DAY
     Dates: start: 20081107
  4. NEXIUM [Suspect]
     Route: 048
  5. TERBUTALINE SULFATE [Concomitant]
  6. IPRATROPIUM BROMURE [Concomitant]
  7. TAMSULOSINE CHLORHYDRATE [Concomitant]
  8. OXAZEPAM [Concomitant]

REACTIONS (1)
  - HYPONATRAEMIA [None]
